FAERS Safety Report 6751185 (Version 4)
Quarter: 2012Q4

REPORT INFORMATION
  Report Type: 
  Country: CA (occurrence: CA)
  Receive Date: 20080909
  Receipt Date: 20121111
  Transmission Date: 20130627
  Serious: Yes (Death, Hospitalization, Other)
  Sender: FDA-Public Use
  Company Number: PHHY2008CA19582

PATIENT
  Sex: Female

DRUGS (1)
  1. SANDOSTATIN LAR [Suspect]
     Indication: NEUROENDOCRINE TUMOUR
     Dosage: 30 mg, QMO
     Route: 030
     Dates: start: 20080317, end: 20081001

REACTIONS (12)
  - Complication of device insertion [Fatal]
  - Infection [Fatal]
  - Cardiac disorder [Fatal]
  - Gait disturbance [Unknown]
  - Decreased appetite [Unknown]
  - Fall [Unknown]
  - Asthenia [Unknown]
  - Blood pressure decreased [Unknown]
  - Anxiety [Unknown]
  - Body temperature decreased [Unknown]
  - Heart rate increased [Unknown]
  - Blood glucose fluctuation [Unknown]
